FAERS Safety Report 6074390-0 (Version None)
Quarter: 2009Q1

REPORT INFORMATION
  Report Type: 
  Country: None (occurrence: None)
  Receive Date: 20090206
  Receipt Date: 20090121
  Transmission Date: 20090719
  Serious: Yes (Hospitalization)
  Sender: FDA-Public Use
  Company Number: 1000003751

PATIENT
  Age: 35 Year
  Sex: Male

DRUGS (4)
  1. ESCITALOPRAM [Suspect]
     Indication: MAJOR DEPRESSION
     Dosage: ORAL
     Route: 048
     Dates: start: 20071002, end: 20080129
  2. ISOPTIN [Concomitant]
  3. IBUPROFEN TABLETS [Concomitant]
  4. OMEPRAZOLE [Concomitant]

REACTIONS (6)
  - AGGRESSION [None]
  - AGITATION [None]
  - IRRITABILITY [None]
  - MANIA [None]
  - RESTLESSNESS [None]
  - SLEEP DISORDER [None]
